FAERS Safety Report 4609993-0 (Version None)
Quarter: 2005Q1

REPORT INFORMATION
  Report Type: 
  Country: None (occurrence: None)
  Receive Date: 20050316
  Receipt Date: 20050310
  Transmission Date: 20050727
  Serious: Yes (Other)
  Sender: FDA-Public Use
  Company Number: PHBS2005BE03536

PATIENT
  Age: 65 Year
  Sex: Male

DRUGS (2)
  1. KREDEX [Concomitant]
  2. LAMISIL [Suspect]
     Indication: NAIL TINEA
     Dosage: 250 MG/D
     Route: 048
     Dates: start: 20040920, end: 20041101

REACTIONS (2)
  - MUSCULOSKELETAL STIFFNESS [None]
  - WEIGHT INCREASED [None]
